FAERS Safety Report 9126065 (Version 1)
Quarter: 2013Q1

REPORT INFORMATION
  Report Type: Spontaneous
  Country: US (occurrence: US)
  Receive Date: 20130117
  Receipt Date: 20130117
  Transmission Date: 20140127
  Serious: Yes (Hospitalization)
  Sender: FDA-Public Use
  Company Number: US-ASTELLAS-2013US000435

PATIENT
  Age: 78 Year
  Sex: Female

DRUGS (1)
  1. PROGRAF [Suspect]
     Indication: HEART TRANSPLANT
     Dosage: 2 MG IN THE MORNING, 3 MG IN THE EVENING
     Route: 048
     Dates: start: 20111101

REACTIONS (1)
  - Transfusion [Unknown]
